FAERS Safety Report 10543062 (Version 1)
Quarter: 2014Q4

REPORT INFORMATION
  Report Type: Spontaneous
  Country: US (occurrence: None)
  Receive Date: 20141024
  Receipt Date: 20141024
  Transmission Date: 20150529
  Serious: Yes (Hospitalization, Disabling)
  Sender: FDA-Public Use
  Company Number: None

PATIENT
  Age: 66 Year
  Sex: Male
  Weight: 124.74 kg

DRUGS (4)
  1. CIPRO [Suspect]
     Active Substance: CIPROFLOXACIN HYDROCHLORIDE
     Indication: ANTHRAX
     Dosage: SWEDISH ISSAQUAH, TAKEN BY MOUTH;
  2. CIPRO [Suspect]
     Active Substance: CIPROFLOXACIN HYDROCHLORIDE
     Indication: RESPIRATORY DISORDER
     Dosage: SWEDISH ISSAQUAH, TAKEN BY MOUTH;
  3. LEVAQUIN [Suspect]
     Active Substance: LEVOFLOXACIN
     Indication: ANTHRAX
     Dosage: 60 DAYS.?10 DAYS ATLEAST 2 TIMES.
  4. LEVAQUIN [Suspect]
     Active Substance: LEVOFLOXACIN
     Indication: RESPIRATORY DISORDER
     Dosage: 60 DAYS.?10 DAYS ATLEAST 2 TIMES.

REACTIONS (2)
  - Tendon rupture [None]
  - Muscle injury [None]

NARRATIVE: CASE EVENT DATE: 20140905
